FAERS Safety Report 16694473 (Version 1)
Quarter: 2019Q3

REPORT INFORMATION
  Report Type: Report from Study
  Country: US (occurrence: US)
  Receive Date: 20190812
  Receipt Date: 20190812
  Transmission Date: 20191004
  Serious: Yes (Other)
  Sender: FDA-Public Use
  Company Number: PHEH2019US032266

PATIENT
  Age: 59 Year
  Sex: Female

DRUGS (1)
  1. GILENYA [Suspect]
     Active Substance: FINGOLIMOD HYDROCHLORIDE
     Indication: MULTIPLE SCLEROSIS
     Dosage: UNK UNK, QD
     Route: 048
     Dates: start: 20110301

REACTIONS (7)
  - Bipolar disorder [Unknown]
  - Movement disorder [Unknown]
  - Fatigue [Unknown]
  - Head injury [Unknown]
  - Paraesthesia [Unknown]
  - Uhthoff^s phenomenon [Unknown]
  - Pain in extremity [Unknown]
